FAERS Safety Report 6099358-X (Version None)
Quarter: 2009Q1

REPORT INFORMATION
  Report Type: 
  Country: None (occurrence: None)
  Receive Date: 20090226
  Receipt Date: 20090226
  Transmission Date: 20090719
  Serious: Yes (Hospitalization)
  Sender: FDA-Public Use
  Company Number: None

PATIENT
  Sex: Male
  Weight: 91.3 kg

DRUGS (2)
  1. BUSULFAN [Suspect]
     Dosage: 528 MG
  2. FLUDARABINE PHOSPHATE [Suspect]
     Dosage: 290 MG

REACTIONS (3)
  - BLOOD BILIRUBIN INCREASED [None]
  - BLOOD LACTATE DEHYDROGENASE INCREASED [None]
  - HAEMOLYSIS [None]
